FAERS Safety Report 12592807 (Version 2)
Quarter: 2016Q3

REPORT INFORMATION
  Report Type: Spontaneous
  Country: SE (occurrence: SE)
  Receive Date: 20160726
  Receipt Date: 20160905
  Transmission Date: 20161109
  Serious: Yes (Hospitalization, Other)
  Sender: FDA-Public Use
  Company Number: SE-JNJFOC-20160719405

PATIENT
  Age: 55 Year
  Sex: Female

DRUGS (2)
  1. RISPERDAL [Suspect]
     Active Substance: RISPERIDONE
     Indication: SCHIZOAFFECTIVE DISORDER
     Route: 048
     Dates: start: 20160509, end: 20160621
  2. AKINETON [Concomitant]
     Active Substance: BIPERIDEN HYDROCHLORIDE
     Route: 065

REACTIONS (5)
  - Anaemia [Recovered/Resolved]
  - Hallucination, auditory [Unknown]
  - Depression [Unknown]
  - Transaminases increased [Recovered/Resolved]
  - General physical health deterioration [Unknown]

NARRATIVE: CASE EVENT DATE: 20160617
